FAERS Safety Report 24185555 (Version 2)
Quarter: 2024Q3

REPORT INFORMATION
  Report Type: Spontaneous
  Country: AR (occurrence: AR)
  Receive Date: 20240807
  Receipt Date: 20240809
  Transmission Date: 20241017
  Serious: No
  Sender: PFIZER
  Company Number: AR-PFIZER INC-202400225920

PATIENT
  Age: 12 Year
  Sex: Male

DRUGS (1)
  1. GENOTROPIN [Suspect]
     Active Substance: SOMATROPIN
     Dosage: UNK

REACTIONS (1)
  - Device mechanical issue [Unknown]
